FAERS Safety Report 8307339-8 (Version None)
Quarter: 2012Q2

REPORT INFORMATION
  Report Type: 
  Country: None (occurrence: None)
  Receive Date: 20120424
  Receipt Date: 20120411
  Transmission Date: 20120825
  Serious: Yes (Hospitalization)
  Sender: FDA-Public Use
  Company Number: PHHY2012DK033178

PATIENT
  Age: 26 Year
  Sex: Male

DRUGS (2)
  1. CLOZAPINE [Suspect]
  2. ZUCLOPENTHIXOL [Suspect]

REACTIONS (5)
  - PARANOIA [None]
  - HALLUCINATION [None]
  - SCREAMING [None]
  - AGGRESSION [None]
  - RESTLESSNESS [None]
